FAERS Safety Report 4367469-2 (Version None)
Quarter: 2004Q2

REPORT INFORMATION
  Report Type: 
  Country: None (occurrence: None)
  Receive Date: 20040528
  Receipt Date: 20040322
  Transmission Date: 20050107
  Serious: Yes (Other)
  Sender: FDA-Public Use
  Company Number: 001085

PATIENT
  Sex: Female

DRUGS (5)
  1. FLUOXETINE [Suspect]
     Indication: DEPRESSION
     Dosage: 40.00 MG, QD, ORAL
     Route: 048
  2. FLUOXETINE [Suspect]
     Indication: SOCIAL PHOBIA
     Dosage: 40.00 MG, QD, ORAL
     Route: 048
  3. NYQIL (ETHANOL, PARACETAMOL, EPHEDRINE SULFATE, DOXYLAMINE SUCCINATE D [Concomitant]
  4. DIPHENHYDRAMINE HCL [Concomitant]
  5. ADVIL [Concomitant]

REACTIONS (2)
  - DRUG INTERACTION [None]
  - SUICIDAL IDEATION [None]
